FAERS Safety Report 9231701 (Version 2)
Quarter: 2013Q2

REPORT INFORMATION
  Report Type: Spontaneous
  Country: US (occurrence: US)
  Receive Date: 20130415
  Receipt Date: 20130624
  Transmission Date: 20140414
  Serious: Yes (Death, Hospitalization, Disabling, Other)
  Sender: FDA-Public Use
  Company Number: US-BAXTER-2013BAX013263

PATIENT
  Sex: Female

DRUGS (1)
  1. DIANEAL LOW CALCIUM [Suspect]
     Indication: PERITONEAL DIALYSIS
     Route: 033
     Dates: start: 201207, end: 201303

REACTIONS (11)
  - Renal failure [Fatal]
  - Therapy cessation [Fatal]
  - Wound infection [Unknown]
  - Blindness unilateral [Unknown]
  - Oesophageal candidiasis [Unknown]
  - Extremity necrosis [Unknown]
  - Calcinosis [Unknown]
  - Hypophagia [Unknown]
  - Visual impairment [Unknown]
  - Wound [Unknown]
  - Pain in extremity [Unknown]
